FAERS Safety Report 4967869-3 (Version None)
Quarter: 2006Q2

REPORT INFORMATION
  Report Type: 
  Country: None (occurrence: None)
  Receive Date: 20060410
  Receipt Date: 20051025
  Transmission Date: 20061013
  Serious: Yes (Hospitalization)
  Sender: FDA-Public Use
  Company Number: US-MERCK-0510USA09318

PATIENT
  Age: 52 Year
  Sex: Female
  Weight: 73 kg

DRUGS (2)
  1. VIOXX [Suspect]
     Indication: FIBROMYALGIA
     Route: 048
     Dates: start: 20000101, end: 20031201
  2. VIOXX [Suspect]
     Route: 048
     Dates: start: 20000101, end: 20031201

REACTIONS (7)
  - CEREBROVASCULAR ACCIDENT [None]
  - CHEST PAIN [None]
  - DELIRIUM [None]
  - GASTRIC DISORDER [None]
  - MENTAL STATUS CHANGES [None]
  - MYOCARDIAL INFARCTION [None]
  - PULMONARY EMBOLISM [None]
